FAERS Safety Report 24882409 (Version 5)
Quarter: 2025Q1

REPORT INFORMATION
  Report Type: Spontaneous
  Country: IS (occurrence: IS)
  Receive Date: 20250124
  Receipt Date: 20250318
  Transmission Date: 20250409
  Serious: Yes (Death, Hospitalization, Other)
  Sender: ABBVIE
  Company Number: IS-ABBVIE-6099215

PATIENT
  Age: 77 Year
  Sex: Female

DRUGS (2)
  1. CARBIDOPA\LEVODOPA [Suspect]
     Active Substance: CARBIDOPA\LEVODOPA
     Indication: Parkinson^s disease
     Route: 050
     Dates: start: 201907
  2. CARBIDOPA\LEVODOPA [Suspect]
     Active Substance: CARBIDOPA\LEVODOPA

REACTIONS (18)
  - Death [Fatal]
  - Feeding disorder [Unknown]
  - Bezoar [Unknown]
  - Gastrointestinal tube insertion [Unknown]
  - Device dislocation [Recovered/Resolved]
  - Chills [Unknown]
  - Vomiting [Unknown]
  - Illness [Not Recovered/Not Resolved]
  - Abdominal pain [Unknown]
  - Duodenal ulcer [Unknown]
  - Complication associated with device [Recovered/Resolved]
  - Ileus [Unknown]
  - Malnutrition [Unknown]
  - Decreased appetite [Unknown]
  - Intestinal ulcer [Unknown]
  - Enteral nutrition [Unknown]
  - Unevaluable event [Unknown]
  - Condition aggravated [Not Recovered/Not Resolved]

NARRATIVE: CASE EVENT DATE: 20250101
